FAERS Safety Report 7411337-6 (Version None)
Quarter: 2011Q2

REPORT INFORMATION
  Report Type: 
  Country: None (occurrence: None)
  Receive Date: 20110413
  Receipt Date: 20110401
  Transmission Date: 20111010
  Serious: Yes (Other)
  Sender: FDA-Public Use
  Company Number: JP-JNJFOC-20110401623

PATIENT
  Age: 59 Year
  Sex: Female

DRUGS (7)
  1. CONTOMIN [Concomitant]
     Route: 048
  2. LODOPIN [Concomitant]
     Route: 048
  3. INVEGA [Suspect]
     Route: 048
  4. RISPERDAL [Concomitant]
     Route: 048
  5. INSULIN [Concomitant]
     Route: 065
  6. INVEGA [Suspect]
     Indication: PRODUCT USED FOR UNKNOWN INDICATION
     Route: 048
  7. LODOPIN [Concomitant]
     Route: 048

REACTIONS (1)
  - HYPOGLYCAEMIA [None]
